FAERS Safety Report 12840210 (Version 2)
Quarter: 2016Q4

REPORT INFORMATION
  Report Type: Spontaneous
  Country: JP (occurrence: JP)
  Receive Date: 20161012
  Receipt Date: 20161129
  Transmission Date: 20170207
  Serious: Yes (Other)
  Sender: FDA-Public Use
  Company Number: JP-PFIZER INC-2016476955

PATIENT
  Age: 81 Year
  Sex: Female

DRUGS (2)
  1. NEUROTROPIN /00398601/ [Concomitant]
     Active Substance: CYANOCOBALAMIN\LIDOCAINE HYDROCHLORIDE\PYRIDOXINE HYDROCHLORIDE\THIAMINE HYDROCHLORIDE
     Dosage: FORMULATION UNKNOWN
     Route: 065
  2. CELECOX [Suspect]
     Active Substance: CELECOXIB
     Indication: PAIN
     Dosage: UNK, AS NEEDED
     Route: 048

REACTIONS (2)
  - Road traffic accident [Unknown]
  - Amnesia [Unknown]
